FAERS Safety Report 4401221-4 (Version None)
Quarter: 2004Q3

REPORT INFORMATION
  Report Type: 
  Country: None (occurrence: None)
  Receive Date: 20040907
  Receipt Date: 20040105
  Transmission Date: 20050211
  Serious: No
  Sender: FDA-Public Use
  Company Number: US-BRISTOL-MYERS SQUIBB COMPANY-12468971

PATIENT
  Age: 71 Year
  Sex: Female
  Weight: 77 kg

DRUGS (3)
  1. COUMADIN [Suspect]
     Indication: THROMBOSIS
     Dosage: 2MG PO X2 TABS ONCE PER DAY INITALLY  2MG PO X5 TABS ONCE PER DAY CURRENTLY
     Route: 048
     Dates: start: 20030901
  2. LEVOTHYROXINE SODIUM [Concomitant]
  3. MULTIVITAMIN [Concomitant]

REACTIONS (1)
  - ALOPECIA [None]
